FAERS Safety Report 4875631-5 (Version None)
Quarter: 2006Q1

REPORT INFORMATION
  Report Type: 
  Country: None (occurrence: None)
  Receive Date: 20060105
  Receipt Date: 20051227
  Transmission Date: 20060701
  Serious: Yes (Other)
  Sender: FDA-Public Use
  Company Number: 2005129911

PATIENT
  Age: 65 Year
  Sex: Female
  Weight: 82 kg

DRUGS (4)
  1. LYRICA [Suspect]
     Indication: PRURITUS
     Dosage: 225 MG (75 MG, 3 IN 1 D), ORAL
     Route: 048
     Dates: start: 20050801, end: 20050908
  2. MICARDIS [Concomitant]
  3. PHYSIOTENS (MOXONIDINE) [Concomitant]
  4. CLOPIDOGREL BISULFATE [Concomitant]

REACTIONS (4)
  - BRADYCARDIA [None]
  - BUNDLE BRANCH BLOCK LEFT [None]
  - DIZZINESS [None]
  - HYPOTENSION [None]
